FAERS Safety Report 9797207 (Version 1)
Quarter: 2014Q1

REPORT INFORMATION
  Report Type: Spontaneous
  Country: US (occurrence: None)
  Receive Date: 20140102
  Receipt Date: 20140102
  Transmission Date: 20141002
  Serious: Yes (Other)
  Sender: FDA-Public Use
  Company Number: None

PATIENT
  Age: 63 Year
  Sex: Female
  Weight: 69.17 kg

DRUGS (4)
  1. FLUCONAZOLE [Suspect]
     Indication: ORAL FUNGAL INFECTION
     Dosage: 2 PILLS 1ST DAY AND 1 PILL DAILY THEREAFTER ?
     Route: 048
     Dates: start: 20130917, end: 20130930
  2. LITHIUM ER [Concomitant]
  3. CENTRAM VIT [Concomitant]
  4. ASA [Concomitant]

REACTIONS (4)
  - Tunnel vision [None]
  - Muscle rupture [None]
  - Gait disturbance [None]
  - Arthralgia [None]
